FAERS Safety Report 8013279-4 (Version None)
Quarter: 2011Q4

REPORT INFORMATION
  Report Type: 
  Country: None (occurrence: None)
  Receive Date: 20111223
  Receipt Date: 20111219
  Transmission Date: 20120403
  Serious: Yes (Disabling)
  Sender: FDA-Public Use
  Company Number: USA/USA/11/0022380

PATIENT
  Age: 30 Year
  Sex: Male
  Weight: 79.3795 kg

DRUGS (5)
  1. RANITIDINE HYDROCHLORIDE [Suspect]
     Indication: PRODUCT USED FOR UNKNOWN INDICATION
     Dosage: 2 IN 1 D
  2. NAPROXEN [Suspect]
     Indication: INFLAMMATION
     Dosage: 500 MG, 1 IN 4 HR;
  3. DICYCLOMINE [Suspect]
     Indication: IRRITABLE BOWEL SYNDROME
     Dosage: 10 MG, 2 IN 1 D,
  4. TRAMADOL HCL [Suspect]
     Indication: PAIN
     Dosage: 1 DOSAGE FORMS, TOTAL
  5. OMEPRAZOLE MAGNESIUM [Suspect]
     Indication: IRRITABLE BOWEL SYNDROME
     Dosage: 20.6 MG, 2 IN 1 D, ORAL;
     Dates: start: 20111101, end: 20111216

REACTIONS (15)
  - COUGH [None]
  - HYPERTENSION [None]
  - PAIN IN EXTREMITY [None]
  - INSOMNIA [None]
  - OROPHARYNGEAL PAIN [None]
  - CHEST PAIN [None]
  - HYPOAESTHESIA [None]
  - ARTHRALGIA [None]
  - DYSPNOEA [None]
  - IMPAIRED WORK ABILITY [None]
  - ANXIETY [None]
  - NAUSEA [None]
  - DISTURBANCE IN ATTENTION [None]
  - MUSCULOSKELETAL CHEST PAIN [None]
  - THINKING ABNORMAL [None]
